FAERS Safety Report 8206289-5 (Version None)
Quarter: 2012Q1

REPORT INFORMATION
  Report Type: 
  Country: None (occurrence: None)
  Receive Date: 20120313
  Receipt Date: 20120305
  Transmission Date: 20120608
  Serious: No
  Sender: FDA-Public Use
  Company Number: PHEH2012US004172

PATIENT
  Sex: Female
  Weight: 82.54 kg

DRUGS (14)
  1. WELLBUTRIN [Concomitant]
     Dosage: 300 MG, QD
  2. ALLEGRA-D 12 HOUR [Concomitant]
     Dosage: 180-240 MG, QD
  3. CELEBREX [Concomitant]
     Indication: OSTEOARTHRITIS
     Dosage: 200 MG, QD
  4. OXYBUTYNIN CHLORIDE [Concomitant]
     Dosage: 1 DF, 2-3 TIMES A DAY
     Route: 048
  5. M.V.I. [Concomitant]
     Dosage: 1 DF, QD
     Route: 048
  6. DIAZEPAM [Concomitant]
     Indication: MUSCLE SPASMS
     Dosage: 1 DF, PRN
  7. TRILEPTAL [Concomitant]
     Dosage: 1 DF, BID
  8. PROVIGIL [Concomitant]
     Indication: FATIGUE
     Dosage: 200 MG, QD
     Dates: start: 20040128
  9. VITAMIN D [Concomitant]
     Dosage: 1 DF, EVERY WEEK
  10. NUTRITION SUPPLEMENTS [Concomitant]
     Dosage: UNK UKN, UNK
  11. GILENYA [Suspect]
     Indication: MULTIPLE SCLEROSIS
     Dosage: 0.5 MG, QD
     Route: 048
     Dates: start: 20111215
  12. ACIPHEX [Concomitant]
     Indication: GASTROOESOPHAGEAL REFLUX DISEASE
     Dosage: 20 MG, BID
     Route: 048
  13. LESCOL XL [Concomitant]
     Dosage: 80 MG, QD
     Route: 048
  14. ZANAFLEX [Concomitant]
     Dosage: 4 DF, QD
     Route: 048

REACTIONS (2)
  - SINUSITIS [None]
  - NON-CARDIAC CHEST PAIN [None]
